FAERS Safety Report 9658551 (Version 2)
Quarter: 2013Q4

REPORT INFORMATION
  Report Type: Spontaneous
  Country: US (occurrence: US)
  Receive Date: 20131030
  Receipt Date: 20131030
  Transmission Date: 20140711
  Serious: No
  Sender: FDA-Public Use
  Company Number: US-PURDUE-USA-2010-0056498

PATIENT
  Age: 78 Year
  Sex: Male
  Weight: 64 kg

DRUGS (2)
  1. OXYCONTIN (NDA 22-272) [Suspect]
     Indication: BACK PAIN
     Dosage: 30 MG, BID
     Route: 048
  2. HYDROCODONE                        /00060002/ [Concomitant]
     Indication: BREAKTHROUGH PAIN

REACTIONS (2)
  - Medication residue present [Recovered/Resolved]
  - Drug effect decreased [Recovered/Resolved]
